FAERS Safety Report 17688694 (Version 6)
Quarter: 2022Q1

REPORT INFORMATION
  Report Type: Report from Study
  Country: US (occurrence: US)
  Receive Date: 20200421
  Receipt Date: 20220329
  Transmission Date: 20220423
  Serious: No
  Sender: FDA-Public Use
  Company Number: NVSC2020US104984

PATIENT
  Sex: Female

DRUGS (1)
  1. COSENTYX [Suspect]
     Active Substance: SECUKINUMAB
     Indication: Psoriasis
     Dosage: 300 MG, UNKNOWN
     Route: 065

REACTIONS (4)
  - Needle issue [Unknown]
  - Maternal exposure before pregnancy [Unknown]
  - Incorrect dose administered [Unknown]
  - Product communication issue [Unknown]
